FAERS Safety Report 20475347 (Version 2)
Quarter: 2022Q4

REPORT INFORMATION
  Report Type: Spontaneous
  Country: CZ (occurrence: CZ)
  Receive Date: 20220215
  Receipt Date: 20221115
  Transmission Date: 20230113
  Serious: Yes (Life-Threatening, Other)
  Sender: FDA-Public Use
  Company Number: CZ-STADA-241505

PATIENT
  Age: 11 Year
  Sex: Female

DRUGS (17)
  1. CELECOXIB [Suspect]
     Active Substance: CELECOXIB
     Indication: Oligoastrocytoma
     Dosage: COMBAT
     Route: 065
  2. CELECOXIB [Suspect]
     Active Substance: CELECOXIB
     Indication: Spinal cord neoplasm
     Dosage: LOW DOSE COMBAT METRONOMIC CHEMOTHERAPY
     Route: 065
  3. TEMOZOLOMIDE [Suspect]
     Active Substance: TEMOZOLOMIDE
     Indication: Oligoastrocytoma
     Dosage: 30 MG/SQ. METER, QD, LOW DOSE COMBAT METRONOMIC
     Route: 048
  4. TEMOZOLOMIDE [Suspect]
     Active Substance: TEMOZOLOMIDE
     Indication: Spinal cord neoplasm
     Dosage: 15 MG/SQ. METER, QD (REDUCED TO 50%)
     Route: 048
  5. TEMOZOLOMIDE [Suspect]
     Active Substance: TEMOZOLOMIDE
     Dosage: 30 MG/SQ. METER, QD, LOW DOSE COMBAT METRONOMIC
     Route: 065
  6. TEMOZOLOMIDE [Suspect]
     Active Substance: TEMOZOLOMIDE
     Dosage: 90 MG/SQ. METER, FOR 42 DAYS
     Route: 065
  7. ETOPOSIDE [Suspect]
     Active Substance: ETOPOSIDE
     Indication: Oligoastrocytoma
     Dosage: 25 MG/SQ. METER, QD, LOW DOSE COMBAT METRONOMIC
     Route: 065
  8. ETOPOSIDE [Suspect]
     Active Substance: ETOPOSIDE
     Indication: Spinal cord neoplasm
     Dosage: 12.5 MG/SQ. METER, QD
     Route: 065
  9. TRETINOIN [Suspect]
     Active Substance: TRETINOIN
     Indication: Oligoastrocytoma
     Dosage: COMBAT
     Route: 065
  10. TRETINOIN [Suspect]
     Active Substance: TRETINOIN
     Indication: Spinal cord neoplasm
     Dosage: LOW DOSE COMBAT METRONOMIC CHEMOTHERAPY
     Route: 065
  11. CHOLECALCIFEROL [Suspect]
     Active Substance: CHOLECALCIFEROL
     Indication: Oligoastrocytoma
     Dosage: COMBAT II
     Route: 065
  12. CHOLECALCIFEROL [Suspect]
     Active Substance: CHOLECALCIFEROL
     Indication: Spinal cord neoplasm
     Dosage: COMBAT II
     Route: 065
  13. FENOFIBRATE [Suspect]
     Active Substance: FENOFIBRATE
     Indication: Oligoastrocytoma
     Dosage: COMBAT II
     Route: 065
  14. FENOFIBRATE [Suspect]
     Active Substance: FENOFIBRATE
     Indication: Spinal cord neoplasm
     Dosage: UNK
     Route: 065
  15. BEVACIZUMAB [Suspect]
     Active Substance: BEVACIZUMAB
     Indication: Oligoastrocytoma
     Dosage: UNK, COMBAT III
     Route: 065
  16. BEVACIZUMAB [Suspect]
     Active Substance: BEVACIZUMAB
     Indication: Spinal cord neoplasm
  17. VINBLASTINE [Suspect]
     Active Substance: VINBLASTINE
     Indication: Oligoastrocytoma
     Dosage: 6 MG/SQ. METER, QW
     Route: 065

REACTIONS (4)
  - Product administration error [Unknown]
  - Myelosuppression [Unknown]
  - Myelosuppression [Unknown]
  - Off label use [Unknown]
